FAERS Safety Report 8851489 (Version 2)
Quarter: 2013Q2

REPORT INFORMATION
  Report Type: Spontaneous
  Country: US (occurrence: US)
  Receive Date: 20121022
  Receipt Date: 20130429
  Transmission Date: 20140414
  Serious: No
  Sender: FDA-Public Use
  Company Number: US-BIOGENIDEC-2012BI044087

PATIENT
  Age: 40 Year
  Sex: Male

DRUGS (1)
  1. TYSABRI [Suspect]
     Indication: MULTIPLE SCLEROSIS
     Route: 042
     Dates: start: 20110606

REACTIONS (9)
  - Abasia [Recovered/Resolved]
  - Insomnia [Recovered/Resolved]
  - Peripheral coldness [Recovered/Resolved]
  - Muscular weakness [Recovered/Resolved]
  - Pallor [Recovered/Resolved]
  - Tremor [Recovered/Resolved]
  - Musculoskeletal discomfort [Recovered/Resolved]
  - Sensory disturbance [Recovered/Resolved]
  - Asthenia [Recovered/Resolved]
